FAERS Safety Report 5064692-9 (Version None)
Quarter: 2006Q3

REPORT INFORMATION
  Report Type: 
  Country: None (occurrence: None)
  Receive Date: 20060728
  Receipt Date: 20060606
  Transmission Date: 20061208
  Serious: Yes (Hospitalization)
  Sender: FDA-Public Use
  Company Number: FR-GLAXOSMITHKLINE-B0426625A

PATIENT
  Age: 75 Year
  Sex: Female
  Weight: 76 kg

DRUGS (3)
  1. ADARTREL [Suspect]
     Indication: RESTLESS LEGS SYNDROME
     Route: 048
     Dates: start: 20060201, end: 20060516
  2. LEGALON [Suspect]
     Indication: RESTLESS LEGS SYNDROME
     Route: 065
  3. NON STEROIDAL ANTI-INFLAMMATORY DRUG [Suspect]
     Indication: RESTLESS LEGS SYNDROME
     Route: 065

REACTIONS (10)
  - ANOREXIA [None]
  - ARTHRALGIA [None]
  - ASTEATOSIS [None]
  - CHOLESTASIS [None]
  - GRANULOMATOUS LIVER DISEASE [None]
  - HAEMODIALYSIS [None]
  - HEPATIC ENZYME INCREASED [None]
  - NAUSEA [None]
  - NEPHRITIS INTERSTITIAL [None]
  - RENAL FAILURE ACUTE [None]
